FAERS Safety Report 6013307-1 (Version None)
Quarter: 2008Q4

REPORT INFORMATION
  Report Type: 
  Country: None (occurrence: None)
  Receive Date: 20081218
  Receipt Date: 20081218
  Transmission Date: 20090506
  Serious: Yes (Life-Threatening, Hospitalization)
  Sender: FDA-Public Use
  Company Number: None

PATIENT
  Sex: Female
  Weight: 107 kg

DRUGS (1)
  1. HEPARIN [Suspect]
     Indication: ACUTE MYOCARDIAL INFARCTION
     Dosage: 5000 UNITS X 1 IVPUSH
     Route: 042
     Dates: start: 20081206

REACTIONS (10)
  - ACIDOSIS [None]
  - BRONCHOGRAM ABNORMAL [None]
  - DISEASE PROGRESSION [None]
  - DYSPNOEA [None]
  - FEELING HOT [None]
  - FLUID OVERLOAD [None]
  - HYPOTENSION [None]
  - MYOCARDIAL INFARCTION [None]
  - RENAL FAILURE ACUTE [None]
  - TACHYCARDIA [None]
